FAERS Safety Report 9744656 (Version 2)
Quarter: 2013Q4

REPORT INFORMATION
  Report Type: Spontaneous
  Country: VE (occurrence: VE)
  Receive Date: 20131210
  Receipt Date: 20131218
  Transmission Date: 20140711
  Serious: Yes (Other)
  Sender: FDA-Public Use
  Company Number: VE-AMGEN-VENSP2013086284

PATIENT
  Age: 64 Year
  Sex: Male

DRUGS (3)
  1. ENBREL [Suspect]
     Indication: PSORIASIS
     Dosage: 25 MG, 2X/WEEK
     Route: 058
     Dates: start: 201111, end: 201212
  2. CARVEDILOL [Concomitant]
     Indication: HYPERTENSION
     Dosage: 12.5 MG, 1X/DAY
     Route: 048
     Dates: start: 2011
  3. PLAVIX [Concomitant]
     Indication: HYPERTENSION
     Dosage: 75 MG, 1X/DAY
     Route: 048
     Dates: start: 2013

REACTIONS (1)
  - Aortic aneurysm [Recovered/Resolved]
